FAERS Safety Report 8214181-5 (Version None)
Quarter: 2012Q1

REPORT INFORMATION
  Report Type: 
  Country: None (occurrence: None)
  Receive Date: 20120316
  Receipt Date: 20120313
  Transmission Date: 20120608
  Serious: Yes (Other)
  Sender: FDA-Public Use
  Company Number: CN-PFIZER INC-2012067626

PATIENT
  Age: 25 Year
  Sex: Female

DRUGS (1)
  1. CELEBREX [Suspect]
     Route: 048

REACTIONS (4)
  - SHOCK [None]
  - PERIPHERAL COLDNESS [None]
  - PALLOR [None]
  - RASH GENERALISED [None]
